FAERS Safety Report 5104730-8 (Version None)
Quarter: 2006Q3

REPORT INFORMATION
  Report Type: 
  Country: None (occurrence: None)
  Receive Date: 20060911
  Receipt Date: 20060911
  Transmission Date: 20061208
  Serious: No
  Sender: FDA-Public Use
  Company Number: None

PATIENT
  Sex: Female
  Weight: 72.5755 kg

DRUGS (2)
  1. WELLBUTRIN XL [Suspect]
     Indication: DEPRESSION
     Dosage: 150 MG 1 A DAY PO
     Route: 048
     Dates: start: 20060723, end: 20060811
  2. WELLBUTRIN XL [Suspect]
     Indication: SMOKING CESSATION THERAPY
     Dosage: 150 MG 1 A DAY PO
     Route: 048
     Dates: start: 20060723, end: 20060811

REACTIONS (4)
  - BLISTER [None]
  - PETECHIAE [None]
  - RASH PRURITIC [None]
  - SKIN EXFOLIATION [None]
